FAERS Safety Report 8375915-2 (Version None)
Quarter: 2012Q2

REPORT INFORMATION
  Report Type: 
  Country: None (occurrence: None)
  Receive Date: 20120522
  Receipt Date: 20120511
  Transmission Date: 20120825
  Serious: Yes (Other)
  Sender: FDA-Public Use
  Company Number: FR-BRISTOL-MYERS SQUIBB COMPANY-16594418

PATIENT
  Age: 54 Year
  Sex: Male

DRUGS (3)
  1. NORVIR [Suspect]
     Indication: HIV INFECTION
     Route: 048
     Dates: start: 20050124, end: 20110809
  2. REYATAZ [Suspect]
     Indication: HIV INFECTION
     Route: 048
     Dates: start: 20050124, end: 20110702
  3. TRUVADA [Suspect]
     Indication: HIV INFECTION
     Dosage: 1DF=200MG/245MG
     Route: 048
     Dates: start: 20110221, end: 20110812

REACTIONS (2)
  - HEPATIC STEATOSIS [None]
  - RENAL COLIC [None]
